FAERS Safety Report 8924963 (Version 1)
Quarter: 2012Q4

REPORT INFORMATION
  Report Type: 
  Country: JP (occurrence: JP)
  Receive Date: 20121126
  Receipt Date: 20121126
  Transmission Date: 20130627
  Serious: No
  Sender: FDA-Public Use
  Company Number: JP-ELI_LILLY_AND_COMPANY-JP201211006014

PATIENT
  Age: 77 Year
  Sex: Male

DRUGS (1)
  1. CIALIS [Suspect]
     Indication: ERECTILE DYSFUNCTION
     Dosage: 10 mg, qd
     Route: 048
     Dates: start: 20120906, end: 20121108

REACTIONS (1)
  - Vision blurred [Recovered/Resolved]
